FAERS Safety Report 15117748 (Version 2)
Quarter: 2018Q3

REPORT INFORMATION
  Report Type: Spontaneous
  Country: US (occurrence: US)
  Receive Date: 20180707
  Receipt Date: 20180830
  Transmission Date: 20181010
  Serious: No
  Sender: FDA-Public Use
  Company Number: US-TEVA-2018-US-922177

PATIENT
  Age: 72 Year
  Sex: Female

DRUGS (5)
  1. POTASSIUM 10 MEQ [Concomitant]
     Dosage: 10 MEQ TWICE A DAY
  2. SOTALOL HYDROCHLORIDE. [Suspect]
     Active Substance: SOTALOL HYDROCHLORIDE
     Indication: ATRIAL FIBRILLATION
     Dosage: 160 MILLIGRAM DAILY;
     Route: 065
     Dates: start: 20180327, end: 201806
  3. ELIQUIS [Concomitant]
     Active Substance: APIXABAN
     Dosage: 10 ML DAILY;
  4. METOPROLOL. [Concomitant]
     Active Substance: METOPROLOL
     Dosage: 50 MILLIGRAM DAILY;
  5. METOPROLOL SUCCINATE. [Concomitant]
     Active Substance: METOPROLOL SUCCINATE
     Dosage: 200 MILLIGRAM DAILY;

REACTIONS (1)
  - Alopecia [Unknown]

NARRATIVE: CASE EVENT DATE: 20180410
